FAERS Safety Report 6855453-6 (Version None)
Quarter: 2010Q3

REPORT INFORMATION
  Report Type: 
  Country: None (occurrence: None)
  Receive Date: 20100719
  Receipt Date: 20100709
  Transmission Date: 20110219
  Serious: Yes (Hospitalization)
  Sender: FDA-Public Use
  Company Number: US-TEVA-241013USA

PATIENT
  Sex: Male

DRUGS (12)
  1. METHOTREXATE SOLUTION FOR INJECTION, 25 MG/ML [Suspect]
     Indication: RHEUMATOID ARTHRITIS
     Dates: start: 20091022
  2. ABATACEPT [Suspect]
     Indication: RHEUMATOID ARTHRITIS
     Route: 058
     Dates: start: 20081010
  3. BUPROPION [Concomitant]
     Dates: start: 20100110
  4. MORNIFLUMATE [Concomitant]
     Dates: start: 20100104
  5. THOMAPYRIN N [Concomitant]
     Dates: start: 20080401
  6. IBUPROFEN [Concomitant]
     Dates: start: 20070301
  7. TRAMADOL [Concomitant]
     Dates: start: 20080101
  8. ACETYLSALICYLIC ACID [Concomitant]
     Dates: start: 20010101
  9. MONTELUKAST [Concomitant]
     Dates: start: 20080701
  10. FOLIC ACID [Concomitant]
     Dates: start: 20080101
  11. RANITIDINE [Concomitant]
     Dates: start: 20030101
  12. PROCET                             /01554201/ [Concomitant]
     Dates: start: 20090617

REACTIONS (1)
  - APPENDICITIS [None]
